FAERS Safety Report 4320331-3 (Version None)
Quarter: 2004Q1

REPORT INFORMATION
  Report Type: 
  Country: None (occurrence: None)
  Receive Date: 20040317
  Receipt Date: 20040310
  Transmission Date: 20041129
  Serious: Yes (Hospitalization)
  Sender: FDA-Public Use
  Company Number: 2004-03-0765

PATIENT
  Age: 62 Year
  Sex: Female

DRUGS (1)
  1. INTRON A [Suspect]
     Indication: HEPATITIS C
     Dosage: 6 MU TIW
     Dates: start: 20030617, end: 20030719

REACTIONS (1)
  - CHOLANGITIS ACUTE [None]
